FAERS Safety Report 16535540 (Version 3)
Quarter: 2019Q3

REPORT INFORMATION
  Report Type: Spontaneous
  Country: US (occurrence: US)
  Receive Date: 20190705
  Receipt Date: 20190827
  Transmission Date: 20191004
  Serious: No
  Sender: FDA-Public Use
  Company Number: US-PFIZER INC-2019283681

PATIENT
  Age: 50 Year
  Sex: Male

DRUGS (1)
  1. XELJANZ XR [Suspect]
     Active Substance: TOFACITINIB CITRATE
     Indication: PSORIASIS
     Dosage: 11 MG, UNK

REACTIONS (6)
  - Blood sodium increased [Unknown]
  - Haemoglobin decreased [Unknown]
  - Hepatitis B virus test positive [Unknown]
  - Hepatitis C antibody positive [Unknown]
  - Off label use [Unknown]
  - Product use in unapproved indication [Unknown]
